FAERS Safety Report 4749440-1 (Version None)
Quarter: 2005Q3

REPORT INFORMATION
  Report Type: 
  Country: None (occurrence: None)
  Receive Date: 20050822
  Receipt Date: 20050809
  Transmission Date: 20060218
  Serious: Yes (Hospitalization, Disabling)
  Sender: FDA-Public Use
  Company Number: CA-JNJFOC-20050802672

PATIENT
  Sex: Female
  Weight: 73.2 kg

DRUGS (2)
  1. REMICADE [Suspect]
     Indication: RHEUMATOID ARTHRITIS
     Route: 042
  2. CESAMET [Suspect]
     Indication: SPINAL COLUMN STENOSIS

REACTIONS (3)
  - CONFUSIONAL STATE [None]
  - SPINAL COLUMN STENOSIS [None]
  - TACHYCARDIA [None]
